FAERS Safety Report 10632155 (Version 1)
Quarter: 2014Q4

REPORT INFORMATION
  Report Type: Spontaneous
  Country: US (occurrence: US)
  Receive Date: 20141205
  Receipt Date: 20141205
  Transmission Date: 20150529
  Serious: No
  Sender: FDA-Public Use
  Company Number: US-BRISTOL-MYERS SQUIBB COMPANY-21420278

PATIENT
  Age: 75 Year
  Sex: Female
  Weight: 95.24 kg

DRUGS (7)
  1. NEXIUM [Concomitant]
     Active Substance: ESOMEPRAZOLE MAGNESIUM
  2. BYDUREON [Suspect]
     Active Substance: EXENATIDE
  3. SKELAXIN [Concomitant]
     Active Substance: METAXALONE
  4. LISINOPRIL. [Concomitant]
     Active Substance: LISINOPRIL
  5. CENTRUM SILVER [Concomitant]
     Active Substance: VITAMINS
  6. VITAMIN D3 [Concomitant]
     Active Substance: CHOLECALCIFEROL
  7. CALCIUM [Concomitant]
     Active Substance: CALCIUM

REACTIONS (1)
  - Injection site mass [Unknown]
